FAERS Safety Report 5730470-8 (Version None)
Quarter: 2008Q2

REPORT INFORMATION
  Report Type: 
  Country: None (occurrence: None)
  Receive Date: 20080507
  Receipt Date: 20080501
  Transmission Date: 20081010
  Serious: Yes (Hospitalization)
  Sender: FDA-Public Use
  Company Number: US-SP-2008-01430

PATIENT
  Age: 79 Year
  Sex: Female

DRUGS (2)
  1. THERACYS [Suspect]
     Route: 043
     Dates: start: 20080104
  2. THERACYS [Suspect]
     Route: 043
     Dates: start: 20080104

REACTIONS (5)
  - ARTHRALGIA [None]
  - CHILLS [None]
  - DYSURIA [None]
  - HAEMATURIA [None]
  - PYREXIA [None]
